FAERS Safety Report 12334873 (Version 1)
Quarter: 2016Q2

REPORT INFORMATION
  Report Type: Spontaneous
  Country: SG (occurrence: SG)
  Receive Date: 20160504
  Receipt Date: 20160504
  Transmission Date: 20160815
  Serious: Yes (Other)
  Sender: FDA-Public Use
  Company Number: SG-ABBVIE-16P-141-1620415-00

PATIENT
  Age: 69 Year
  Sex: Female

DRUGS (1)
  1. KLACID MR [Suspect]
     Active Substance: CLARITHROMYCIN
     Indication: EAR INFECTION
     Dosage: 500 MG (ONCE EVERY MORNING)
     Route: 048
     Dates: start: 20160312

REACTIONS (1)
  - Jaundice [Recovered/Resolved]

NARRATIVE: CASE EVENT DATE: 201603
